FAERS Safety Report 24350122 (Version 1)
Quarter: 2024Q3

REPORT INFORMATION
  Report Type: Report from Study
  Country: US (occurrence: US)
  Receive Date: 20240923
  Receipt Date: 20240923
  Transmission Date: 20241017
  Serious: Yes (Hospitalization, Other)
  Sender: BAYER
  Company Number: US-BAYER-2024A082152

PATIENT
  Age: 48 Year
  Sex: Female

DRUGS (8)
  1. ADEMPAS [Suspect]
     Active Substance: RIOCIGUAT
     Indication: Pulmonary arterial hypertension
     Dosage: UNK
     Route: 048
  2. ADEMPAS [Suspect]
     Active Substance: RIOCIGUAT
     Indication: Product used for unknown indication
     Dosage: 1.5 MG, TID
     Route: 048
     Dates: start: 202404, end: 2024
  3. ADEMPAS [Suspect]
     Active Substance: RIOCIGUAT
     Indication: Pulmonary arterial hypertension
     Dosage: 2 MG, TID
     Route: 048
     Dates: start: 202408
  4. HEPARIN [Concomitant]
     Active Substance: HEPARIN SODIUM
  5. NUCALA [Concomitant]
     Active Substance: MEPOLIZUMAB
  6. TYVASO DPI [Concomitant]
     Active Substance: TREPROSTINIL
     Indication: Pulmonary arterial hypertension
     Dosage: UNK
     Route: 048
     Dates: start: 202305
  7. TYVASO DPI [Concomitant]
     Active Substance: TREPROSTINIL
     Indication: Pulmonary arterial hypertension
     Dosage: 32 ?G, TID
     Route: 048
  8. TAKHZYRO [Concomitant]
     Active Substance: LANADELUMAB-FLYO

REACTIONS (27)
  - Asthma [None]
  - Pulmonary arterial hypertension [None]
  - Hereditary angioedema [None]
  - Trigeminal neuralgia [None]
  - Trigeminal neuralgia [None]
  - Trigeminal neuralgia [None]
  - Central venous catheter removal [None]
  - Central venous catheterisation [None]
  - Trigeminal neuralgia [None]
  - Trigeminal neuralgia [None]
  - Trigeminal neuralgia [None]
  - Loss of consciousness [None]
  - Laryngeal oedema [None]
  - Blood pressure systolic decreased [None]
  - Trigeminal neuralgia [None]
  - Laryngeal oedema [None]
  - Trigeminal neuralgia [None]
  - Laryngeal oedema [None]
  - Weight increased [None]
  - Weight decreased [None]
  - Nausea [Not Recovered/Not Resolved]
  - Hypotension [None]
  - Vomiting [None]
  - Diarrhoea [None]
  - Hypotension [None]
  - Weight increased [None]
  - Pharyngeal swelling [None]

NARRATIVE: CASE EVENT DATE: 20240101
